FAERS Safety Report 12857391 (Version 2)
Quarter: 2016Q4

REPORT INFORMATION
  Report Type: Spontaneous
  Country: GB (occurrence: GB)
  Receive Date: 20161018
  Receipt Date: 20161111
  Transmission Date: 20170207
  Serious: Yes (Other)
  Sender: FDA-Public Use
  Company Number: GB-REGENERON PHARMACEUTICALS, INC.-2016-22510

PATIENT

DRUGS (2)
  1. LUCENTIS [Concomitant]
     Active Substance: RANIBIZUMAB
     Indication: NEOVASCULAR AGE-RELATED MACULAR DEGENERATION
     Dosage: UNK UNK, Q1MON
     Route: 031
     Dates: start: 20160503
  2. EYLEA [Suspect]
     Active Substance: AFLIBERCEPT
     Indication: NEOVASCULAR AGE-RELATED MACULAR DEGENERATION
     Dosage: LAST INJECTION ON 03-MAY-2016
     Dates: start: 20140506

REACTIONS (3)
  - Blindness [Unknown]
  - Multiple use of single-use product [Unknown]
  - Non-infectious endophthalmitis [Unknown]

NARRATIVE: CASE EVENT DATE: 2016
